FAERS Safety Report 11836734 (Version 1)
Quarter: 2015Q4

REPORT INFORMATION
  Report Type: Spontaneous
  Country: US (occurrence: None)
  Receive Date: 20151214
  Receipt Date: 20151214
  Transmission Date: 20160305
  Serious: Yes (Death, Hospitalization)
  Sender: FDA-Public Use
  Company Number: GB-ALSI-201500313

PATIENT
  Age: 72 Year
  Sex: Female

DRUGS (2)
  1. MEDICAL OXYGEN [Suspect]
     Active Substance: OXYGEN
     Indication: PRODUCT USED FOR UNKNOWN INDICATION
     Dosage: RESPIRATORY
     Route: 055
     Dates: start: 201305
  2. OXYGEN. [Suspect]
     Active Substance: OXYGEN

REACTIONS (3)
  - Intentional product misuse [None]
  - Dyspnoea [None]
  - Thermal burn [None]

NARRATIVE: CASE EVENT DATE: 20151127
